FAERS Safety Report 19148352 (Version 1)
Quarter: 2021Q2

REPORT INFORMATION
  Report Type: Report from Study
  Country: IN (occurrence: IN)
  Receive Date: 20210416
  Receipt Date: 20210416
  Transmission Date: 20210717
  Serious: Yes (Hospitalization, Other)
  Sender: FDA-Public Use
  Company Number: IN-GLAXOSMITHKLINE-IN2021GSK086153

PATIENT
  Age: 28 Year
  Sex: Female

DRUGS (3)
  1. RANITIDINE HYDROCHLORIDE. [Suspect]
     Active Substance: RANITIDINE HYDROCHLORIDE
     Indication: PRODUCT USED FOR UNKNOWN INDICATION
     Dosage: 50 MG, BID
  2. LACTATED RINGERS SOLUTION [Concomitant]
     Active Substance: CALCIUM CHLORIDE\POTASSIUM CHLORIDE\SODIUM CHLORIDE\SODIUM LACTATE
     Indication: PRODUCT USED FOR UNKNOWN INDICATION
     Dosage: 500 ML, 1D
  3. PHENYTOIN. [Interacting]
     Active Substance: PHENYTOIN
     Indication: SEIZURE
     Dosage: 100 MG, TID
     Route: 042

REACTIONS (8)
  - Nystagmus [Recovered/Resolved]
  - Muscle twitching [Recovered/Resolved]
  - Dysarthria [Recovered/Resolved]
  - Seizure [Recovered/Resolved]
  - Blepharospasm [Recovered/Resolved]
  - Ataxia [Recovered/Resolved]
  - Drug interaction [Recovered/Resolved]
  - Toxicity to various agents [Recovered/Resolved]
